FAERS Safety Report 12391116 (Version 3)
Quarter: 2016Q3

REPORT INFORMATION
  Report Type: Spontaneous
  Country: US (occurrence: US)
  Receive Date: 20160520
  Receipt Date: 20160921
  Transmission Date: 20161109
  Serious: No
  Sender: FDA-Public Use
  Company Number: US-PFIZER INC-2016234917

PATIENT
  Age: 75 Year
  Sex: Female

DRUGS (15)
  1. SUCRALFATE. [Concomitant]
     Active Substance: SUCRALFATE
     Dosage: UNK
  2. LYRICA [Suspect]
     Active Substance: PREGABALIN
     Indication: GASTROINTESTINAL PAIN
     Dosage: 50 MG, 3X/DAY
     Dates: start: 201605
  3. NEXIUM [Concomitant]
     Active Substance: ESOMEPRAZOLE MAGNESIUM
  4. LINZESS [Concomitant]
     Active Substance: LINACLOTIDE
     Dosage: UNK
  5. NAMENDA XR [Concomitant]
     Active Substance: MEMANTINE HYDROCHLORIDE
     Dosage: UNK
  6. LEVOTHYROXINE. [Concomitant]
     Active Substance: LEVOTHYROXINE
     Dosage: UNK
  7. PRAVASTATIN. [Concomitant]
     Active Substance: PRAVASTATIN
     Dosage: UNK
  8. TAMSULOSIN [Concomitant]
     Active Substance: TAMSULOSIN
     Dosage: UNK
  9. AMLODIPINE BESYLATE. [Concomitant]
     Active Substance: AMLODIPINE BESYLATE
     Dosage: UNK
  10. PRELIEF [Concomitant]
     Active Substance: CALCIUM GLYCEROPHOSPHATE
     Dosage: UNK
  11. CITALOPRAM [Concomitant]
     Active Substance: CITALOPRAM HYDROBROMIDE
     Dosage: UNK
  12. LYRICA [Suspect]
     Active Substance: PREGABALIN
     Indication: PAIN IN EXTREMITY
  13. LYRICA [Suspect]
     Active Substance: PREGABALIN
     Indication: NEURALGIA
  14. FUROSEMIDE. [Concomitant]
     Active Substance: FUROSEMIDE
     Dosage: UNK
  15. PROBIOTIC ALIGN [Concomitant]
     Dosage: UNK

REACTIONS (1)
  - Drug ineffective [Not Recovered/Not Resolved]

NARRATIVE: CASE EVENT DATE: 201605
